FAERS Safety Report 4526882-0 (Version None)
Quarter: 2004Q4

REPORT INFORMATION
  Report Type: 
  Country: None (occurrence: None)
  Receive Date: 20041213
  Receipt Date: 20041129
  Transmission Date: 20050328
  Serious: Yes (Other)
  Sender: FDA-Public Use
  Company Number: 2004102114

PATIENT
  Age: 52 Year
  Sex: Female

DRUGS (1)
  1. EXEMESTANE TABLET (EXEMESTANE) [Suspect]
     Indication: BREAST CANCER FEMALE
     Dosage: ORAL/ 2,5 YEARS ONGOING
     Route: 048

REACTIONS (3)
  - CARPAL TUNNEL SYNDROME [None]
  - FEELING ABNORMAL [None]
  - MOVEMENT DISORDER [None]
